FAERS Safety Report 8794829 (Version 1)
Quarter: 2012Q4

REPORT INFORMATION
  Report Type: 
  Country: FR (occurrence: FR)
  Receive Date: 20120917
  Receipt Date: 20120917
  Transmission Date: 20130627
  Serious: Yes (Hospitalization)
  Sender: FDA-Public Use
  Company Number: FR-ROCHE-1125354

PATIENT
  Age: 46 Year
  Sex: Male

DRUGS (3)
  1. APRANAX [Suspect]
     Indication: BACK PAIN
     Route: 048
     Dates: start: 20120801, end: 20120808
  2. MYOLASTAN [Concomitant]
     Indication: BACK PAIN
     Route: 048
     Dates: start: 20120801, end: 20120804
  3. INEXIUM [Concomitant]
     Route: 048
     Dates: start: 20120801, end: 20120808

REACTIONS (2)
  - Enterocolitis haemorrhagic [Recovered/Resolved]
  - Rectal haemorrhage [Recovered/Resolved]
